FAERS Safety Report 9498954 (Version 2)
Quarter: 2013Q4

REPORT INFORMATION
  Report Type: Spontaneous
  Country: US (occurrence: US)
  Receive Date: 20130904
  Receipt Date: 20131004
  Transmission Date: 20140711
  Serious: Yes (Hospitalization, Other)
  Sender: FDA-Public Use
  Company Number: US-TEVA-430404USA

PATIENT
  Age: 64 Year
  Sex: Female

DRUGS (13)
  1. PACLITAXEL [Suspect]
     Indication: BREAST CANCER
     Dosage: ONE DOSE
     Route: 042
     Dates: start: 20130513, end: 20130513
  2. CYMBALTA [Concomitant]
     Dosage: 60 MILLIGRAM DAILY;
  3. DITROPAN [Concomitant]
     Dosage: 5 MILLIGRAM DAILY;
  4. GABAPENTIN [Concomitant]
     Dosage: 900 MILLIGRAM DAILY;
  5. LOPID [Concomitant]
     Dosage: 1200 MILLIGRAM DAILY;
  6. MIRALAX [Concomitant]
     Indication: CONSTIPATION
     Dosage: PRN
  7. MOBIC [Concomitant]
     Dosage: 7.5 MILLIGRAM DAILY;
  8. PERI-COLACE [Concomitant]
     Dosage: PRN
  9. PRAVACHOL [Concomitant]
     Dosage: 40 MILLIGRAM DAILY;
  10. TRAZODONE [Concomitant]
     Dosage: 50 MILLIGRAM DAILY;
  11. ZANTAC [Concomitant]
     Dosage: 75 MILLIGRAM DAILY;
  12. ZESTORETIC [Concomitant]
     Dosage: 20 MG/25 MG DAILY
  13. PROCHLORPERAZINE [Concomitant]
     Indication: NAUSEA
     Dosage: Q 4-6 HOURS PRN

REACTIONS (5)
  - Pneumonitis [Recovered/Resolved]
  - Dyspnoea [Recovered/Resolved]
  - Pain in extremity [Recovered/Resolved]
  - Arthralgia [Recovered/Resolved]
  - Skin exfoliation [Recovered/Resolved]
